FAERS Safety Report 10089409 (Version 2)
Quarter: 2014Q2

REPORT INFORMATION
  Report Type: Spontaneous
  Country: US (occurrence: US)
  Receive Date: 20140421
  Receipt Date: 20140501
  Transmission Date: 20141212
  Serious: Yes (Death)
  Sender: FDA-Public Use
  Company Number: US-B.I. PHARMACEUTICALS,INC./RIDGEFIELD-2014-BI-17799BP

PATIENT
  Age: 52 Year
  Sex: Female

DRUGS (24)
  1. SPIRIVA [Suspect]
     Indication: CHRONIC OBSTRUCTIVE PULMONARY DISEASE
     Dosage: 18 MCG
     Route: 055
     Dates: start: 20130927
  2. NYSTATIN [Concomitant]
     Indication: RASH
     Dosage: STRENGTH: 100000 UNIT/GM
     Route: 065
  3. NYSTATIN [Concomitant]
     Dosage: 20 ML
     Route: 048
  4. COUMADIN [Concomitant]
     Route: 065
  5. ROPINIROLE HCL [Concomitant]
     Dosage: 1 MG
     Route: 065
  6. CLONAZEPAM [Concomitant]
     Indication: ANXIETY
     Dosage: 1 MG
     Route: 065
  7. OMEPRAZOLE [Concomitant]
     Dosage: 80 MG
     Route: 065
  8. SYMBICORT [Concomitant]
     Dosage: 2 PUF
     Route: 065
  9. SINGULAIR [Concomitant]
     Dosage: 10 MG
     Route: 065
  10. PREDNISONE [Concomitant]
     Dosage: 10 MG
     Route: 065
  11. PREDNISONE [Concomitant]
     Dosage: 50 MG
     Route: 065
  12. PROAIR HFA [Concomitant]
     Indication: WHEEZING
     Dosage: STRENGHT:108 (90 BASE) MCG/ACT
     Route: 055
  13. KLOR-CON M20 20 MEQ CR [Concomitant]
     Dosage: 4 ANZ
     Route: 065
  14. METOLAZONE [Concomitant]
     Dosage: 2.5 MG
     Route: 065
  15. SPIRONOLACTONE [Concomitant]
     Dosage: 50 MG
     Route: 065
  16. FUROSEMIDE [Concomitant]
     Dosage: 160 MG
     Route: 065
  17. ATENOLOL [Concomitant]
     Dosage: 50 MG
     Route: 065
  18. DIAZEPAM [Concomitant]
     Indication: MUSCLE SPASMS
     Dosage: STRENGHT: 2 MG, DAILY DOSE: 1-2 TABS EVERY 4-6 HRS AS NEEDED
     Route: 065
  19. BACLOFEN [Concomitant]
     Indication: MUSCLE SPASMS
     Dosage: 40 MG
     Route: 065
  20. NEURONTIN [Concomitant]
     Indication: NEUROPATHY PERIPHERAL
     Dosage: 1800 MG
     Route: 065
  21. OXYCODONE-ACETAMINOPHEN [Concomitant]
     Dosage: STRENGHT: 5-325 MG, DAILY DOSE: 1-2 TABS TWICE A DAY
     Route: 065
  22. OXYGEN [Concomitant]
     Dosage: ROUTE: NASAL CANNULA
     Route: 050
  23. ROBITUSSIN [Concomitant]
     Indication: COUGH
     Dosage: ONE TSP EVERY 4 HOURS AT NIGHT
     Route: 065
  24. TRAZODONE HCL [Concomitant]
     Dosage: 100 MG
     Route: 065

REACTIONS (1)
  - Death [Fatal]
